FAERS Safety Report 14872421 (Version 2)
Quarter: 2018Q2

REPORT INFORMATION
  Report Type: Spontaneous
  Country: US (occurrence: US)
  Receive Date: 20180510
  Receipt Date: 20180517
  Transmission Date: 20180711
  Serious: No
  Sender: FDA-Public Use
  Company Number: US-AMGEN-USASP2018061177

PATIENT
  Sex: Female

DRUGS (4)
  1. ENBREL [Suspect]
     Active Substance: ETANERCEPT
     Dosage: 25 MG/1 CC, QWK
     Route: 065
  2. ENBREL [Suspect]
     Active Substance: ETANERCEPT
     Dosage: 25 MG/1 CC, QWK
     Route: 065
  3. IBUPROFEN. [Concomitant]
     Active Substance: IBUPROFEN
     Dosage: 1 TBSP, AS NECESSARY MAYBE 1X OR 2X A WEEK
     Route: 048
  4. ENBREL [Suspect]
     Active Substance: ETANERCEPT
     Indication: JUVENILE IDIOPATHIC ARTHRITIS
     Dosage: 0.6 CC, UNK
     Route: 065
     Dates: start: 2013

REACTIONS (9)
  - Injection site bruising [Unknown]
  - Therapeutic response unexpected [Unknown]
  - Upper respiratory tract infection [Unknown]
  - Eye inflammation [Unknown]
  - Nasopharyngitis [Unknown]
  - Product storage error [Unknown]
  - Wrong technique in product usage process [Unknown]
  - Gait inability [Unknown]
  - Drug ineffective [Unknown]

NARRATIVE: CASE EVENT DATE: 2017
